FAERS Safety Report 14433529 (Version 1)
Quarter: 2018Q1

REPORT INFORMATION
  Report Type: Spontaneous
  Country: US (occurrence: US)
  Receive Date: 20180124
  Receipt Date: 20180124
  Transmission Date: 20180509
  Serious: Yes (Hospitalization)
  Sender: FDA-Public Use
  Company Number: US-PIRAMAL CRITICAL CARE LIMITED-T201702534

PATIENT

DRUGS (4)
  1. BACLOFEN. [Concomitant]
     Active Substance: BACLOFEN
     Dosage: UNK
     Route: 048
  2. GABLOFEN [Suspect]
     Active Substance: BACLOFEN
     Indication: CEREBRAL PALSY
     Dosage: 75 ?G, QD (CONC. 1000 ?G/ML)
     Route: 037
  3. GABLOFEN [Suspect]
     Active Substance: BACLOFEN
     Dosage: 1692 ?G, QD (CONC. 2000 ?G/ML)
     Route: 037
     Dates: start: 2017
  4. GABLOFEN [Suspect]
     Active Substance: BACLOFEN
     Indication: MUSCLE SPASTICITY
     Dosage: 1600 ?G, QD (CONC. 2000 ?G/ML)
     Route: 037

REACTIONS (3)
  - Device malfunction [Unknown]
  - Withdrawal syndrome [Unknown]
  - Muscle spasticity [Unknown]
